FAERS Safety Report 4686261-2 (Version None)
Quarter: 2005Q2

REPORT INFORMATION
  Report Type: 
  Country: None (occurrence: None)
  Receive Date: 20050609
  Receipt Date: 20050530
  Transmission Date: 20051028
  Serious: Yes (Hospitalization)
  Sender: FDA-Public Use
  Company Number: DE-GLAXOSMITHKLINE-B0382786A

PATIENT
  Age: 59 Year
  Sex: Male
  Weight: 78 kg

DRUGS (8)
  1. TOPOTECAN [Suspect]
     Route: 042
  2. CISPLATIN [Suspect]
     Route: 042
  3. CONCOR [Concomitant]
  4. MST [Concomitant]
  5. DIPYRONE TAB [Concomitant]
  6. NAUSEA MEDICATION (UNKNOWN) [Concomitant]
  7. PANTOPRAZOLE SODIUM [Concomitant]
  8. ENALAPRIL MALEATE [Concomitant]

REACTIONS (5)
  - ANGINA PECTORIS [None]
  - CARDIAC DISORDER [None]
  - DIARRHOEA [None]
  - HYPOVOLAEMIA [None]
  - VOMITING [None]
